FAERS Safety Report 15749686 (Version 1)
Quarter: 2018Q4

REPORT INFORMATION
  Report Type: Spontaneous
  Country: US (occurrence: US)
  Receive Date: 20181221
  Receipt Date: 20181221
  Transmission Date: 20190205
  Serious: No
  Sender: FDA-Public Use
  Company Number: US-BAYER-2018-241193

PATIENT
  Age: 61 Year
  Sex: Female
  Weight: 53 kg

DRUGS (3)
  1. POTASSIUM [Concomitant]
     Active Substance: POTASSIUM
     Dosage: UNK
  2. TRIAMTERENE. [Concomitant]
     Active Substance: TRIAMTERENE
     Dosage: UNK
  3. MIRALAX [Suspect]
     Active Substance: POLYETHYLENE GLYCOL 3350
     Indication: GASTROINTESTINAL DISORDER
     Dosage: 17 G, QD
     Route: 048
     Dates: start: 2008

REACTIONS (1)
  - Blood potassium decreased [Not Recovered/Not Resolved]

NARRATIVE: CASE EVENT DATE: 2017
